FAERS Safety Report 6602153-3 (Version None)
Quarter: 2010Q1

REPORT INFORMATION
  Report Type: 
  Country: None (occurrence: None)
  Receive Date: 20100225
  Receipt Date: 20100222
  Transmission Date: 20100710
  Serious: Yes (Other)
  Sender: FDA-Public Use
  Company Number: PHEH2009US17053

PATIENT
  Sex: Female

DRUGS (14)
  1. GLEEVEC [Suspect]
     Indication: GASTROINTESTINAL STROMAL TUMOUR
     Dosage: 400 MG, QD
     Route: 048
     Dates: start: 20091001
  2. GLEEVEC [Suspect]
     Dosage: NO TREATMENT
  3. GLEEVEC [Suspect]
     Dosage: 400 MG, QD
     Route: 048
  4. ATENOLOL [Concomitant]
  5. FISH OIL [Concomitant]
  6. MULTI-VITAMINS [Concomitant]
  7. VITAMINS [Concomitant]
     Dosage: UNK
  8. IRON [Concomitant]
     Dosage: UNK
  9. POTASSIUM [Concomitant]
     Dosage: UNK
  10. WELCHOL [Concomitant]
     Dosage: UNK
  11. LIPITOR [Concomitant]
     Dosage: UNK
  12. LIQUID PAIN MEDICINE [Concomitant]
  13. BOOSTER [Concomitant]
  14. GINGER TEA [Concomitant]

REACTIONS (19)
  - ACNE [None]
  - DIARRHOEA [None]
  - DRY SKIN [None]
  - DYSPHAGIA [None]
  - EYELID OEDEMA [None]
  - FLATULENCE [None]
  - GASTRECTOMY [None]
  - LEUKOPLAKIA ORAL [None]
  - MALAISE [None]
  - MALIGNANT NEOPLASM PROGRESSION [None]
  - NAUSEA [None]
  - ODYNOPHAGIA [None]
  - OROPHARYNGEAL PAIN [None]
  - PHARYNGEAL OEDEMA [None]
  - RHINORRHOEA [None]
  - SKIN TIGHTNESS [None]
  - TONGUE DISORDER [None]
  - VOMITING [None]
  - WEIGHT DECREASED [None]
